FAERS Safety Report 23179062 (Version 1)
Quarter: 2023Q4

REPORT INFORMATION
  Report Type: Spontaneous
  Country: PL (occurrence: PT)
  Receive Date: 20231113
  Receipt Date: 20231113
  Transmission Date: 20240110
  Serious: Yes (Other)
  Sender: FDA-Public Use
  Company Number: PL-002147023-NVSC2023PL230606

PATIENT
  Age: 73 Year
  Sex: Male

DRUGS (2)
  1. BOSUTINIB [Suspect]
     Active Substance: BOSUTINIB
     Dosage: 400 MG
     Route: 065
     Dates: start: 20210211
  2. IMATINIB [Suspect]
     Active Substance: IMATINIB
     Indication: Chronic myeloid leukaemia
     Dosage: UNK
     Route: 065
     Dates: start: 20061019

REACTIONS (5)
  - Philadelphia chromosome positive [Unknown]
  - Anaemia [Recovered/Resolved]
  - Cardiac failure [Unknown]
  - Blood creatine increased [Recovering/Resolving]
  - Blood potassium increased [Recovering/Resolving]
